FAERS Safety Report 4744236-9 (Version None)
Quarter: 2005Q3

REPORT INFORMATION
  Report Type: 
  Country: None (occurrence: None)
  Receive Date: 20050809
  Receipt Date: 20050804
  Transmission Date: 20060218
  Serious: Yes (Death, Other)
  Sender: FDA-Public Use
  Company Number: 200510051GDS

PATIENT
  Age: 33 Year
  Sex: Female

DRUGS (8)
  1. GLUCOBAY [Suspect]
     Indication: OBESITY
     Dosage: 10 MG, TOTAL DAILY,
     Dates: start: 20040401
  2. HORDEUM VULGARE [Concomitant]
  3. ANTACYANOSIDES [Concomitant]
  4. ADLAC [Concomitant]
  5. FLU [Concomitant]
  6. INDER [Concomitant]
  7. SENOKOT [Concomitant]
  8. HORDEUM VULGARE [Concomitant]

REACTIONS (31)
  - AGITATION [None]
  - BACILLUS INFECTION [None]
  - BRAIN OEDEMA [None]
  - BRAIN STEM ISCHAEMIA [None]
  - CEREBRAL DISORDER [None]
  - COMA [None]
  - COMPUTERISED TOMOGRAM ABNORMAL [None]
  - DEPRESSED LEVEL OF CONSCIOUSNESS [None]
  - DEPRESSION [None]
  - DIARRHOEA [None]
  - FEELING ABNORMAL [None]
  - HEPATIC ENCEPHALOPATHY [None]
  - HEPATIC FAILURE [None]
  - HEPATITIS ACUTE [None]
  - HEPATITIS VIRAL [None]
  - HYPOXIA [None]
  - LEPTOSPIROSIS [None]
  - METABOLIC DISORDER [None]
  - MULTI-ORGAN FAILURE [None]
  - NEUROGENIC SHOCK [None]
  - OEDEMA [None]
  - PALPITATIONS [None]
  - PLEURAL EFFUSION [None]
  - PSYCHOTIC DISORDER [None]
  - RENAL FAILURE ACUTE [None]
  - RESPIRATORY FAILURE [None]
  - RHABDOMYOLYSIS [None]
  - SEPTIC SHOCK [None]
  - SIMPLE PARTIAL SEIZURES [None]
  - SPEECH DISORDER [None]
  - UPPER GASTROINTESTINAL HAEMORRHAGE [None]
